FAERS Safety Report 25200549 (Version 3)
Quarter: 2025Q2

REPORT INFORMATION
  Report Type: Spontaneous
  Country: US (occurrence: US)
  Receive Date: 20250415
  Receipt Date: 20250508
  Transmission Date: 20250717
  Serious: Yes (Hospitalization, Other)
  Sender: MERCK SHARP & DOHME LLC
  Company Number: US-009507513-2273713

PATIENT
  Sex: Male

DRUGS (8)
  1. KEYTRUDA [Suspect]
     Active Substance: PEMBROLIZUMAB
     Indication: Prostate cancer
     Dosage: EVERY 6 WEEKS
     Route: 042
     Dates: start: 20220307
  2. Calcium Vitamin [Concomitant]
  3. POTASSIUM [Concomitant]
     Active Substance: POTASSIUM
  4. AMLODIPINE [Concomitant]
     Active Substance: AMLODIPINE BESYLATE
     Indication: Hypertension
  5. PANTOPRAZOLE [Concomitant]
     Active Substance: PANTOPRAZOLE
  6. PROCHLORPERAZINE [Concomitant]
     Active Substance: PROCHLORPERAZINE
  7. ROPINIROLE HYDROCHLORIDE [Concomitant]
     Active Substance: ROPINIROLE HYDROCHLORIDE
  8. AMITRIPTYLINE HYDROCHLORIDE [Concomitant]
     Active Substance: AMITRIPTYLINE HYDROCHLORIDE

REACTIONS (24)
  - Nephrolithiasis [Unknown]
  - Radiotherapy [Unknown]
  - Diarrhoea [Unknown]
  - Peripheral swelling [Unknown]
  - Hip arthroplasty [Unknown]
  - Urinary incontinence [Unknown]
  - Feeling cold [Unknown]
  - Weight decreased [Unknown]
  - Tooth loss [Unknown]
  - Malignant neoplasm progression [Unknown]
  - Memory impairment [Unknown]
  - Vascular pain [Unknown]
  - Clostridium difficile infection [Unknown]
  - Sepsis [Unknown]
  - Urinary tract infection [Unknown]
  - Increased tendency to bruise [Unknown]
  - Medical device implantation [Unknown]
  - Renal disorder [Unknown]
  - Amnesia [Unknown]
  - Impaired healing [Unknown]
  - Stent removal [Unknown]
  - Skin atrophy [Unknown]
  - Blood pressure abnormal [Unknown]
  - Body temperature abnormal [Unknown]

NARRATIVE: CASE EVENT DATE: 20230101
